FAERS Safety Report 6023901-X (Version None)
Quarter: 2008Q4

REPORT INFORMATION
  Report Type: 
  Country: None (occurrence: None)
  Receive Date: 20081230
  Receipt Date: 20081224
  Transmission Date: 20090506
  Serious: Yes (Other)
  Sender: FDA-Public Use
  Company Number: US-PFIZER INC-2008082015

PATIENT
  Sex: Female
  Weight: 56.818 kg

DRUGS (3)
  1. LIPITOR [Suspect]
     Dates: end: 20080101
  2. ALL OTHER THERAPEUTIC PRODUCTS [Concomitant]
  3. ASPIRIN [Concomitant]

REACTIONS (5)
  - FATIGUE [None]
  - MOBILITY DECREASED [None]
  - MUSCULAR WEAKNESS [None]
  - PAIN [None]
  - RHABDOMYOLYSIS [None]
